FAERS Safety Report 14066867 (Version 1)
Quarter: 2017Q4

REPORT INFORMATION
  Report Type: Spontaneous
  Country: US (occurrence: US)
  Receive Date: 20171010
  Receipt Date: 20171010
  Transmission Date: 20180321
  Serious: No
  Sender: FDA-Public Use
  Company Number: US-LUPIN PHARMACEUTICALS INC.-2017-03941

PATIENT
  Age: 64 Year
  Sex: Female
  Weight: 61.22 kg

DRUGS (1)
  1. MORPHINE SULPHATE EXTENDED RELEASE TABLET 15 MG [Suspect]
     Active Substance: MORPHINE SULFATE
     Indication: PAIN
     Dosage: 15 MG, BID
     Route: 048
     Dates: start: 20170301, end: 20170430

REACTIONS (5)
  - Diarrhoea [Recovered/Resolved]
  - Throat tightness [Recovered/Resolved]
  - Influenza like illness [Recovered/Resolved]
  - Fatigue [Recovered/Resolved]
  - Nausea [Recovered/Resolved]

NARRATIVE: CASE EVENT DATE: 20170301
